FAERS Safety Report 6918768-9 (Version None)
Quarter: 2010Q3

REPORT INFORMATION
  Report Type: 
  Country: None (occurrence: None)
  Receive Date: 20100811
  Receipt Date: 20100805
  Transmission Date: 20110219
  Serious: Yes (Hospitalization)
  Sender: FDA-Public Use
  Company Number: FR-RB-012723-10

PATIENT
  Sex: Female
  Weight: 53 kg

DRUGS (3)
  1. SUBOXONE [Suspect]
     Route: 060
     Dates: start: 20100623, end: 20100707
  2. SUBOXONE [Suspect]
     Indication: DRUG DEPENDENCE
     Route: 060
     Dates: start: 20100716
  3. SUBUTEX [Concomitant]
     Indication: DRUG DEPENDENCE
     Route: 060
     Dates: start: 20100708, end: 20100715

REACTIONS (3)
  - ALCOHOL REHABILITATION [None]
  - CACHEXIA [None]
  - SEPSIS [None]
